FAERS Safety Report 5722242-5 (Version None)
Quarter: 2008Q2

REPORT INFORMATION
  Report Type: 
  Country: None (occurrence: None)
  Receive Date: 20080424
  Receipt Date: 20080410
  Transmission Date: 20081010
  Serious: Yes (Hospitalization)
  Sender: FDA-Public Use
  Company Number: KADN20080021

PATIENT
  Age: 43 Year
  Sex: Female

DRUGS (3)
  1. MORPHINE [Suspect]
     Indication: PAIN
  2. LAPATINIB [Suspect]
     Indication: BREAST CANCER METASTATIC
     Dosage: 1250 MG, ORAL
     Route: 048
     Dates: start: 20080318, end: 20080320
  3. XELODA [Suspect]
     Indication: BREAST CANCER METASTATIC
     Dosage: 3600 MG, ORAL
     Route: 048
     Dates: start: 20080318, end: 20080320

REACTIONS (21)
  - ASPARTATE AMINOTRANSFERASE INCREASED [None]
  - BLOOD ALBUMIN DECREASED [None]
  - BLOOD ALKALINE PHOSPHATASE INCREASED [None]
  - BLOOD POTASSIUM INCREASED [None]
  - BLOOD UREA INCREASED [None]
  - BONE CANCER METASTATIC [None]
  - CONDITION AGGRAVATED [None]
  - DEHYDRATION [None]
  - DYSPNOEA [None]
  - HYPONATRAEMIA [None]
  - HYPOTENSION [None]
  - LUNG CONSOLIDATION [None]
  - LYMPHADENOPATHY [None]
  - METASTASES TO ABDOMINAL CAVITY [None]
  - METASTASES TO THE MEDIASTINUM [None]
  - NAUSEA [None]
  - ORAL INTAKE REDUCED [None]
  - PLEURAL EFFUSION [None]
  - PROTEIN TOTAL INCREASED [None]
  - TACHYCARDIA [None]
  - VOMITING [None]
